FAERS Safety Report 7946513-7 (Version None)
Quarter: 2011Q4

REPORT INFORMATION
  Report Type: 
  Country: None (occurrence: None)
  Receive Date: 20111129
  Receipt Date: 20111116
  Transmission Date: 20120403
  Serious: Yes (Death)
  Sender: FDA-Public Use
  Company Number: CH-NOVOPROD-338912

PATIENT

DRUGS (5)
  1. TRANEXAMIC ACID C [Concomitant]
     Dosage: 3 G
  2. FIBRINOGEN [Concomitant]
     Dosage: 4 G
  3. FRESH FROZEN PLASMA [Concomitant]
     Dosage: 8 PACKS
  4. PLATELETS [Concomitant]
     Dosage: (5 PACKS)
  5. NOVOSEVEN RT [Suspect]
     Indication: AORTIC DISSECTION
     Dosage: 6 MG, QD
     Dates: start: 20110907, end: 20110907

REACTIONS (1)
  - INTRACARDIAC THROMBUS [None]
